FAERS Safety Report 5422317-4 (Version None)
Quarter: 2007Q3

REPORT INFORMATION
  Report Type: 
  Country: None (occurrence: None)
  Receive Date: 20070822
  Receipt Date: 20070813
  Transmission Date: 20080115
  Serious: Yes (Other)
  Sender: FDA-Public Use
  Company Number: HQWYE530213AUG07

PATIENT
  Sex: Male

DRUGS (4)
  1. EUPANTOL [Suspect]
     Indication: GASTROOESOPHAGEAL REFLUX DISEASE
     Dosage: ^ 3 TABLETS 20 MG PER WEEK  ON DEMAND^
     Route: 048
     Dates: start: 19991119, end: 20070726
  2. EUPANTOL [Suspect]
     Indication: OESOPHAGEAL DISORDER
  3. PARACETAMOL [Concomitant]
     Indication: OSTEOARTHRITIS
     Dosage: 1G PER WEEK ^ON DEMAND^
     Route: 048
  4. LORAZEPAM [Concomitant]
     Indication: ANXIETY DISORDER
     Route: 048

REACTIONS (2)
  - HYPERTHYROIDISM [None]
  - THYROID NEOPLASM [None]
